FAERS Safety Report 4588579-0 (Version None)
Quarter: 2005Q1

REPORT INFORMATION
  Report Type: 
  Country: None (occurrence: None)
  Receive Date: 20050222
  Receipt Date: 20050214
  Transmission Date: 20050727
  Serious: Yes (Other)
  Sender: FDA-Public Use
  Company Number: PHEH2005US02040

PATIENT
  Age: 60 Year
  Sex: Male
  Weight: 104 kg

DRUGS (3)
  1. DIOVAN [Suspect]
     Indication: HYPERTENSION
     Dosage: 80 MG, QD
     Route: 048
     Dates: start: 20010401, end: 20010801
  2. DIOVAN [Suspect]
     Dosage: 160 MG, QD
     Route: 048
     Dates: start: 20010801, end: 20011201
  3. NORVASC [Concomitant]

REACTIONS (3)
  - PARKINSON'S DISEASE [None]
  - RESTLESS LEGS SYNDROME [None]
  - TREMOR [None]
